FAERS Safety Report 23993691 (Version 1)
Quarter: 2024Q2

REPORT INFORMATION
  Report Type: Spontaneous
  Country: GR (occurrence: GR)
  Receive Date: 20240620
  Receipt Date: 20240620
  Transmission Date: 20240716
  Serious: Yes (Other)
  Sender: FDA-Public Use
  Company Number: GR-MACLEODS PHARMA-MAC2024047749

PATIENT
  Age: 14 Year
  Sex: Female

DRUGS (1)
  1. ACYCLOVIR [Suspect]
     Active Substance: ACYCLOVIR
     Indication: Herpes simplex meningoencephalitis
     Dosage: 30 MG/KG/24 H IN 3 DIVIDED DOSES, IN 100 ML OF 0.9% SODIUM CHLORIDE
     Route: 042

REACTIONS (5)
  - Extravasation [Recovering/Resolving]
  - Catheter site pain [Recovering/Resolving]
  - Dermatitis bullous [Recovering/Resolving]
  - Skin necrosis [Recovering/Resolving]
  - Skin disorder [Recovering/Resolving]
